FAERS Safety Report 20760220 (Version 6)
Quarter: 2022Q3

REPORT INFORMATION
  Report Type: Report from Study
  Country: US (occurrence: US)
  Receive Date: 20220428
  Receipt Date: 20220630
  Transmission Date: 20221027
  Serious: Yes (Other)
  Sender: FDA-Public Use
  Company Number: US-NOVARTISTESTPH-NVSC2022US097578

PATIENT
  Age: 79 Year
  Sex: Female

DRUGS (2)
  1. ENTRESTO [Suspect]
     Active Substance: SACUBITRIL\VALSARTAN
     Indication: Product used for unknown indication
     Dosage: UNK UNK, BID
     Route: 048
     Dates: start: 20220422
  2. ATORVASTATIN [Suspect]
     Active Substance: ATORVASTATIN
     Indication: Product used for unknown indication
     Dosage: UNK
     Route: 065

REACTIONS (17)
  - Renal impairment [Unknown]
  - Glomerular filtration rate decreased [Recovered/Resolved]
  - Myocardial infarction [Unknown]
  - Renal neoplasm [Unknown]
  - Drug-induced liver injury [Unknown]
  - Insomnia [Unknown]
  - Illness [Unknown]
  - Blood alkaline phosphatase increased [Unknown]
  - Liver disorder [Unknown]
  - Weight decreased [Unknown]
  - Hepatic steatosis [Unknown]
  - Irritable bowel syndrome [Unknown]
  - Blood sodium decreased [Recovering/Resolving]
  - Vertigo [Unknown]
  - Fatigue [Unknown]
  - Product dose omission in error [Unknown]
  - Wrong technique in product usage process [Unknown]

NARRATIVE: CASE EVENT DATE: 20220620
